FAERS Safety Report 4457903-1 (Version None)
Quarter: 2004Q3

REPORT INFORMATION
  Report Type: 
  Country: None (occurrence: None)
  Receive Date: 20040917
  Receipt Date: 20040630
  Transmission Date: 20050211
  Serious: Yes (Life-Threatening, Hospitalization)
  Sender: FDA-Public Use
  Company Number: US-JNJFOC-20040601909

PATIENT
  Age: 63 Year
  Sex: Male

DRUGS (4)
  1. TOPAMAX [Suspect]
     Indication: ANXIETY DISORDER
     Dosage: DOSAGE BEGAN AT A ^LOW^ DOSE AND TITRATED UP; 75 MG, 2 IN 1 DAY, ORAL
     Route: 048
  2. TOPAMAX [Suspect]
     Indication: BIPOLAR I DISORDER
     Dosage: DOSAGE BEGAN AT A ^LOW^ DOSE AND TITRATED UP; 75 MG, 2 IN 1 DAY, ORAL
     Route: 048
  3. DEPAKOTE [Suspect]
     Indication: CARDIAC DISORDER
     Dosage: 1500 MG, IN 1 DAY; THE PATIENT WAS SLOWLY TITRATED OFF THE MEDICATION
  4. METOPROLOL TARTRATE [Concomitant]

REACTIONS (6)
  - ABDOMINAL PAIN [None]
  - CONFUSIONAL STATE [None]
  - CONSTIPATION [None]
  - HEART RATE INCREASED [None]
  - HYPERTENSION [None]
  - MANIA [None]
